FAERS Safety Report 6394655-2 (Version None)
Quarter: 2009Q4

REPORT INFORMATION
  Report Type: 
  Country: None (occurrence: None)
  Receive Date: 20091009
  Receipt Date: 20091005
  Transmission Date: 20100525
  Serious: Yes (Other)
  Sender: FDA-Public Use
  Company Number: HU-JNJFOC-20091001224

PATIENT
  Sex: Female

DRUGS (1)
  1. TAVANIC [Suspect]
     Indication: SINUSITIS
     Route: 048
     Dates: start: 20080701

REACTIONS (2)
  - ECCHYMOSIS [None]
  - THROMBOCYTOPENIA [None]
